FAERS Safety Report 4301655-2 (Version None)
Quarter: 2004Q1

REPORT INFORMATION
  Report Type: 
  Country: None (occurrence: None)
  Receive Date: 20040223
  Receipt Date: 20040216
  Transmission Date: 20041129
  Serious: Yes (Disabling)
  Sender: FDA-Public Use
  Company Number: 200412138GDDC

PATIENT
  Age: 75 Year
  Sex: Male

DRUGS (9)
  1. EUGLUCON [Suspect]
     Indication: DIABETES MELLITUS
     Dosage: DOSE: UNK
  2. BACTRIM [Suspect]
     Indication: PNEUMOCYSTIS CARINII PNEUMONIA
     Dosage: DOSE: UNK
     Route: 048
  3. DIGOSIN [Suspect]
     Indication: ATRIAL FIBRILLATION
     Dosage: DOSE: UNK
     Route: 048
  4. MEROPEN [Suspect]
     Dosage: DOSE: UNK
  5. CLINDAMYCIN HCL [Suspect]
     Dosage: DOSE: UNK
  6. MINOMYCIN [Suspect]
     Dosage: DOSE: UNK
  7. CLARITH [Suspect]
     Dosage: DOSE: UNK
  8. MODACIN [Suspect]
     Dosage: DOSE: UNK
  9. CORTICOSTEROIDS [Suspect]
     Dosage: DOSE: UNK

REACTIONS (1)
  - PAROSMIA [None]
